FAERS Safety Report 15762670 (Version 2)
Quarter: 2019Q1

REPORT INFORMATION
  Report Type: Spontaneous
  Country: GB (occurrence: GB)
  Receive Date: 20181226
  Receipt Date: 20190125
  Transmission Date: 20190417
  Serious: Yes (Hospitalization)
  Sender: FDA-Public Use
  Company Number: GB-PFIZER INC-2018521754

PATIENT
  Age: 43 Year
  Sex: Male
  Weight: 73 kg

DRUGS (10)
  1. CIPROFLOXACIN. [Concomitant]
     Active Substance: CIPROFLOXACIN
  2. VANCOMYCIN HCL [Suspect]
     Active Substance: VANCOMYCIN HYDROCHLORIDE
     Indication: ENDOCARDITIS
     Dosage: 1250 MG, EVERY 8 HOURS
     Route: 042
     Dates: start: 20181019, end: 20181122
  3. OLANZAPINE. [Concomitant]
     Active Substance: OLANZAPINE
  4. EDOXABAN [Concomitant]
     Active Substance: EDOXABAN TOSYLATE
  5. GENTAMICIN SULFATE. [Concomitant]
     Active Substance: GENTAMICIN SULFATE
  6. CODEINE [Concomitant]
     Active Substance: CODEINE
  7. FLUPENTIXOL DECANOATE [Concomitant]
     Active Substance: FLUPENTIXOL DECANOATE
  8. FERROUS FUMARATE [Concomitant]
     Active Substance: FERROUS FUMARATE
  9. PARACETAMOL [Concomitant]
     Active Substance: ACETAMINOPHEN
  10. CHLORPHENAMINE [Concomitant]
     Active Substance: CHLORPHENIRAMINE MALEATE

REACTIONS (1)
  - Paraesthesia [Recovered/Resolved]

NARRATIVE: CASE EVENT DATE: 20181121
